FAERS Safety Report 17269199 (Version 2)
Quarter: 2020Q3

REPORT INFORMATION
  Report Type: Spontaneous
  Country: US (occurrence: US)
  Receive Date: 20200114
  Receipt Date: 20200714
  Transmission Date: 20201102
  Serious: No
  Sender: FDA-Public Use
  Company Number: US-VANDA PHARMACEUTICALS, INC-2019TASUS003617

PATIENT
  Sex: Female

DRUGS (3)
  1. HETLIOZ [Suspect]
     Active Substance: TASIMELTEON
     Indication: NON-24-HOUR SLEEP-WAKE DISORDER
     Dosage: 20 MG, UNK
     Dates: start: 20181003
  2. BUSPIRONE [Concomitant]
     Active Substance: BUSPIRONE HYDROCHLORIDE
     Indication: PRODUCT USED FOR UNKNOWN INDICATION
  3. CLONAZEPAM. [Concomitant]
     Active Substance: CLONAZEPAM
     Indication: PRODUCT USED FOR UNKNOWN INDICATION
     Dosage: 20 MG, QD
     Route: 048
     Dates: start: 20181003

REACTIONS (6)
  - Anxiety [Unknown]
  - Depression [Unknown]
  - Insomnia [Unknown]
  - Musculoskeletal stiffness [Unknown]
  - Nocturnal dyspnoea [Unknown]
  - Weight decreased [Unknown]
